FAERS Safety Report 24780833 (Version 1)
Quarter: 2024Q4

REPORT INFORMATION
  Report Type: Spontaneous
  Country: CN (occurrence: CN)
  Receive Date: 20241227
  Receipt Date: 20241227
  Transmission Date: 20250115
  Serious: Yes (Other)
  Sender: ABBVIE
  Company Number: CN-ABBVIE-6065000

PATIENT
  Age: 57 Year
  Sex: Male
  Weight: 58 kg

DRUGS (3)
  1. VENETOCLAX [Suspect]
     Active Substance: VENETOCLAX
     Indication: Acute myeloid leukaemia
     Dosage: FIRST DAY
     Route: 048
     Dates: start: 20241212, end: 20241212
  2. VENETOCLAX [Suspect]
     Active Substance: VENETOCLAX
     Indication: Acute myeloid leukaemia
     Dosage: 400 MILLIGRAM, THIRD DAY AND ONWARDS
     Route: 048
     Dates: start: 20241214, end: 20241216
  3. VENETOCLAX [Suspect]
     Active Substance: VENETOCLAX
     Indication: Acute myeloid leukaemia
     Dosage: SECOND DAY
     Route: 048
     Dates: start: 20241213, end: 20241213

REACTIONS (4)
  - Cardiotoxicity [Recovering/Resolving]
  - Dyspnoea [Recovering/Resolving]
  - Palpitations [Recovering/Resolving]
  - Acute myeloid leukaemia [Unknown]

NARRATIVE: CASE EVENT DATE: 20241201
